FAERS Safety Report 4996575-4 (Version None)
Quarter: 2006Q2

REPORT INFORMATION
  Report Type: 
  Country: None (occurrence: None)
  Receive Date: 20060505
  Receipt Date: 20060428
  Transmission Date: 20061013
  Serious: Yes (Death)
  Sender: FDA-Public Use
  Company Number: 145033USA

PATIENT
  Age: 55 Year
  Sex: Female

DRUGS (2)
  1. COPAXONE [Suspect]
     Indication: MULTIPLE SCLEROSIS
     Dates: start: 19990101, end: 20060304
  2. AVONEX [Suspect]

REACTIONS (1)
  - PNEUMONIA [None]
